FAERS Safety Report 15607497 (Version 2)
Quarter: 2019Q1

REPORT INFORMATION
  Report Type: Spontaneous
  Country: JP (occurrence: JP)
  Receive Date: 20181112
  Receipt Date: 20190125
  Transmission Date: 20190417
  Serious: Yes (Hospitalization)
  Sender: FDA-Public Use
  Company Number: JP-JNJFOC-20181112540

PATIENT
  Age: 78 Year
  Sex: Female

DRUGS (6)
  1. EPADEL [Concomitant]
     Active Substance: ICOSAPENT
     Route: 048
     Dates: start: 20111213, end: 20171221
  2. RISEDRONATE SODIUM. [Concomitant]
     Active Substance: RISEDRONATE SODIUM
     Route: 048
     Dates: start: 20141205, end: 20171221
  3. ATEDIO [Concomitant]
     Route: 048
     Dates: start: 20150109, end: 20171221
  4. CANAGLU [Suspect]
     Active Substance: CANAGLIFLOZIN
     Indication: TYPE 2 DIABETES MELLITUS
     Route: 048
     Dates: start: 20160308, end: 20171221
  5. LENDORMIN [Concomitant]
     Active Substance: BROTIZOLAM
     Route: 048
     Dates: start: 20130719, end: 20171221
  6. TENELIA [Concomitant]
     Active Substance: TENELIGLIPTIN
     Indication: TYPE 2 DIABETES MELLITUS
     Route: 048
     Dates: start: 20140318, end: 20171221

REACTIONS (2)
  - Fall [Unknown]
  - Carotid artery stenosis [Recovered/Resolved]

NARRATIVE: CASE EVENT DATE: 20170106
